FAERS Safety Report 18522506 (Version 1)
Quarter: 2020Q4

REPORT INFORMATION
  Report Type: Spontaneous
  Country: US (occurrence: US)
  Receive Date: 20201119
  Receipt Date: 20201119
  Transmission Date: 20210114
  Serious: No
  Sender: FDA-Public Use
  Company Number: US-ELI_LILLY_AND_COMPANY-US202010012249

PATIENT
  Age: 38 Year
  Sex: Female

DRUGS (4)
  1. EMGALITY [Suspect]
     Active Substance: GALCANEZUMAB-GNLM
     Indication: HEADACHE
     Dosage: 120 MG, UNKNOWN
     Route: 058
  2. EMGALITY [Suspect]
     Active Substance: GALCANEZUMAB-GNLM
     Indication: MIGRAINE
  3. LAMICTAL [Concomitant]
     Active Substance: LAMOTRIGINE
     Indication: MIGRAINE
     Dosage: 375 MG, BID
     Route: 065
  4. LYRICA [Concomitant]
     Active Substance: PREGABALIN
     Indication: MIGRAINE
     Dosage: 150 MG, BID
     Route: 065

REACTIONS (1)
  - Underdose [Unknown]

NARRATIVE: CASE EVENT DATE: 20201021
